FAERS Safety Report 17066563 (Version 1)
Quarter: 2019Q4

REPORT INFORMATION
  Report Type: Spontaneous
  Country: ES (occurrence: ES)
  Receive Date: 20191122
  Receipt Date: 20191122
  Transmission Date: 20200122
  Serious: Yes (Other)
  Sender: FDA-Public Use
  Company Number: ES-MYLANLABS-2019M1113447

PATIENT
  Age: 30 Year
  Sex: Female

DRUGS (1)
  1. AZELASTINE. [Suspect]
     Active Substance: AZELASTINE HYDROCHLORIDE
     Indication: PRODUCT USED FOR UNKNOWN INDICATION
     Dosage: 3 TIMES/DAY
     Route: 065

REACTIONS (3)
  - Eye inflammation [Recovered/Resolved]
  - Deposit eye [Recovered/Resolved]
  - Eye pruritus [Recovered/Resolved]
